FAERS Safety Report 7528439-6 (Version None)
Quarter: 2011Q2

REPORT INFORMATION
  Report Type: 
  Country: None (occurrence: None)
  Receive Date: 20110607
  Receipt Date: 20100420
  Transmission Date: 20111010
  Serious: No
  Sender: FDA-Public Use
  Company Number: US-ASTRAZENECA-2010SE18944

PATIENT
  Sex: Female

DRUGS (4)
  1. PRILOSEC OTC [Suspect]
     Indication: ULCER
     Route: 048
     Dates: start: 20100413
  2. FOLIC ACID [Concomitant]
     Dosage: UNKNOWN
  3. VITAMIN A [Concomitant]
     Dosage: UNKNOWN
  4. THYROID THERAPY [Concomitant]
     Dosage: UNKNOWN

REACTIONS (1)
  - TONGUE DISORDER [None]
